FAERS Safety Report 10701281 (Version 2)
Quarter: 2015Q1

REPORT INFORMATION
  Report Type: Spontaneous
  Country: JP (occurrence: JP)
  Receive Date: 20150109
  Receipt Date: 20150209
  Transmission Date: 20150721
  Serious: No
  Sender: FDA-Public Use
  Company Number: JP-BRACCO-008726

PATIENT
  Age: 67 Year
  Sex: Male
  Weight: 41 kg

DRUGS (1)
  1. IOPAMIRON [Suspect]
     Active Substance: IOPAMIDOL
     Indication: COMPUTERISED TOMOGRAM
     Route: 040
     Dates: start: 20141218, end: 20141218

REACTIONS (2)
  - Toxic skin eruption [None]
  - Drug eruption [Recovered/Resolved]

NARRATIVE: CASE EVENT DATE: 20141218
